FAERS Safety Report 16489349 (Version 1)
Quarter: 2019Q2

REPORT INFORMATION
  Report Type: Spontaneous
  Country: US (occurrence: US)
  Receive Date: 20190517
  Receipt Date: 20190517
  Transmission Date: 20190711
  Serious: No
  Sender: FDA-Public Use
  Company Number: None

PATIENT
  Age: 67 Year
  Sex: Female

DRUGS (1)
  1. DEFERASIROX 500MG [Suspect]
     Active Substance: DEFERASIROX
     Indication: IRON METABOLISM DISORDER
     Route: 048
     Dates: start: 20161026

REACTIONS (3)
  - Product physical issue [None]
  - Drug ineffective [None]
  - Product solubility abnormal [None]

NARRATIVE: CASE EVENT DATE: 201904
